FAERS Safety Report 11344183 (Version 1)
Quarter: 2015Q3

REPORT INFORMATION
  Report Type: Spontaneous
  Country: US (occurrence: None)
  Receive Date: 20150805
  Receipt Date: 20150805
  Transmission Date: 20151125
  Serious: No
  Sender: FDA-Public Use
  Company Number: None

PATIENT
  Age: 19 Year
  Sex: Male

DRUGS (1)
  1. AZITHROMYCIN [Suspect]
     Active Substance: AZITHROMYCIN ANHYDROUS
     Dates: start: 20130704, end: 20130708

REACTIONS (8)
  - Jaundice [None]
  - Aspartate aminotransferase increased [None]
  - Pruritus [None]
  - Blood alkaline phosphatase increased [None]
  - Alanine aminotransferase increased [None]
  - Dysuria [None]
  - Drug-induced liver injury [None]
  - Fatigue [None]

NARRATIVE: CASE EVENT DATE: 20131028
